FAERS Safety Report 23154691 (Version 2)
Quarter: 2025Q1

REPORT INFORMATION
  Report Type: Spontaneous
  Country: US (occurrence: US)
  Receive Date: 20231107
  Receipt Date: 20250109
  Transmission Date: 20250409
  Serious: No
  Sender: PFIZER
  Company Number: US-PFIZER INC-PV202300177617

PATIENT
  Age: 71 Year
  Sex: Male

DRUGS (1)
  1. XALKORI [Suspect]
     Active Substance: CRIZOTINIB
     Indication: Anaplastic large cell lymphoma T- and null-cell types
     Dosage: 250 MG, 2X/DAY (WHOLE WITH WATER, WITH OR WITHOUT FOOD AT THE SAME TIME EACH DAY)
     Route: 048

REACTIONS (2)
  - Rash macular [Unknown]
  - Neoplasm progression [Unknown]
